FAERS Safety Report 14609460 (Version 1)
Quarter: 2018Q1

REPORT INFORMATION
  Report Type: Other
  Country: FI (occurrence: FI)
  Receive Date: 20180307
  Receipt Date: 20180307
  Transmission Date: 20180509
  Serious: Yes (Life-Threatening)
  Sender: FDA-Public Use
  Company Number: FI-CELLTRION INC.-2017FI013217

PATIENT

DRUGS (6)
  1. REMSIMA [Suspect]
     Active Substance: INFLIXIMAB
     Dosage: 800MG/C
     Route: 042
     Dates: start: 20170328, end: 20170328
  2. AZAMUN [Concomitant]
     Active Substance: AZATHIOPRINE
     Indication: COLITIS ULCERATIVE
     Dosage: 50 MG/D
     Route: 048
     Dates: start: 20161221
  3. REMSIMA [Suspect]
     Active Substance: INFLIXIMAB
     Indication: COLITIS ULCERATIVE
     Dosage: 800MG
     Route: 042
     Dates: start: 20161220, end: 20161220
  4. CIPROXIN                           /00697201/ [Concomitant]
     Active Substance: CIPROFLOXACIN
     Indication: COLITIS
     Dosage: 500 MG/D
     Route: 048
     Dates: start: 20161221, end: 20161227
  5. FLAGYL [Concomitant]
     Active Substance: METRONIDAZOLE\METRONIDAZOLE HYDROCHLORIDE
     Dosage: 400 MG/D
     Route: 048
     Dates: start: 20161221, end: 20161227
  6. PREDNISOLON                        /00016201/ [Concomitant]
     Active Substance: PREDNISOLONE
     Indication: COLITIS ULCERATIVE
     Dosage: 30 MG/D
     Route: 048
     Dates: start: 20161221, end: 20170129

REACTIONS (2)
  - Seminoma [Unknown]
  - Inappropriate schedule of drug administration [Unknown]

NARRATIVE: CASE EVENT DATE: 20170405
